FAERS Safety Report 4754472-3 (Version None)
Quarter: 2005Q3

REPORT INFORMATION
  Report Type: 
  Country: None (occurrence: None)
  Receive Date: 20050829
  Receipt Date: 20050609
  Transmission Date: 20060218
  Serious: No
  Sender: FDA-Public Use
  Company Number: US-GLAXOSMITHKLINE-A0562023A

PATIENT
  Age: 52 Year
  Sex: Female

DRUGS (2)
  1. ZOVIRAX [Suspect]
     Route: 048
  2. NORTRIPTYLINE HCL [Concomitant]

REACTIONS (2)
  - DIARRHOEA [None]
  - NAUSEA [None]
